FAERS Safety Report 4850693-X (Version None)
Quarter: 2005Q4

REPORT INFORMATION
  Report Type: 
  Country: None (occurrence: None)
  Receive Date: 20051212
  Receipt Date: 20051201
  Transmission Date: 20060501
  Serious: Yes (Other)
  Sender: FDA-Public Use
  Company Number: US-JNJFOC-20051200912

PATIENT
  Sex: Female

DRUGS (18)
  1. INFLIXIMAB [Suspect]
     Indication: RHEUMATOID ARTHRITIS
     Route: 042
  2. PLAQUENIL [Concomitant]
  3. SULFASALAZINE [Concomitant]
  4. VITAMIN B-12 [Concomitant]
  5. FOLIC ACID [Concomitant]
  6. AMITRIPTYLINE HCL [Concomitant]
  7. ATENOLOL [Concomitant]
  8. AVAPRO [Concomitant]
  9. ASPIRIN [Concomitant]
  10. CELEXA [Concomitant]
  11. TEMAZEPAM [Concomitant]
     Dosage: 15 MG AT BEDTIME
  12. PREDNISONE [Concomitant]
  13. METHOTREXATE [Concomitant]
  14. PREMARIN [Concomitant]
  15. NEURONTIN [Concomitant]
  16. PREVACID [Concomitant]
  17. DETROL LA [Concomitant]
  18. FIODINE XL [Concomitant]

REACTIONS (1)
  - HISTOPLASMOSIS [None]
